FAERS Safety Report 7017612-1 (Version None)
Quarter: 2010Q3

REPORT INFORMATION
  Report Type: 
  Country: None (occurrence: None)
  Receive Date: 20100928
  Receipt Date: 20100323
  Transmission Date: 20110219
  Serious: No
  Sender: FDA-Public Use
  Company Number: US-BAYER-201020516BCC

PATIENT
  Age: 18 Year
  Sex: Female

DRUGS (2)
  1. ALEVE-D SINUS + COLD [Suspect]
     Indication: SINUS CONGESTION
     Dosage: TOTAL DAILY DOSE: 1 DF
     Route: 048
     Dates: start: 20100323
  2. NAPROXEN [Suspect]
     Indication: ARTHRALGIA
     Dosage: TOTAL DAILY DOSE: 500 MG  UNIT DOSE: 500 MG
     Route: 048
     Dates: start: 20100323

REACTIONS (1)
  - NO ADVERSE EVENT [None]
